FAERS Safety Report 10669791 (Version 2)
Quarter: 2014Q4

REPORT INFORMATION
  Report Type: Spontaneous
  Country: FI (occurrence: FI)
  Receive Date: 20141222
  Receipt Date: 20141222
  Transmission Date: 20150529
  Serious: Yes (Life-Threatening, Other)
  Sender: FDA-Public Use
  Company Number: FI-GLAXOSMITHKLINE-B1004316A

PATIENT
  Age: 62 Year
  Sex: Female

DRUGS (16)
  1. PANTOPRAZOLE [Concomitant]
     Active Substance: PANTOPRAZOLE SODIUM
     Indication: PROPHYLAXIS
     Route: 048
  2. CALCICHEW [Concomitant]
     Active Substance: CALCIUM CARBONATE
     Indication: MINERAL SUPPLEMENTATION
     Route: 048
  3. VOXRA [Suspect]
     Active Substance: BUPROPION HYDROCHLORIDE
     Indication: DEPRESSION
     Dosage: 150 MG 1X1
     Route: 048
     Dates: start: 20140514, end: 20140602
  4. OPAMOX [Concomitant]
     Indication: SLEEP DISORDER
  5. MIANSERIN [Concomitant]
     Active Substance: MIANSERIN
     Indication: AFFECTIVE DISORDER
     Route: 048
  6. MIANSERIN [Concomitant]
     Active Substance: MIANSERIN
     Indication: SLEEP DISORDER
  7. EFEXOR DEPOT [Concomitant]
     Active Substance: VENLAFAXINE HYDROCHLORIDE
     Indication: AFFECTIVE DISORDER
     Route: 048
  8. DINIT [Concomitant]
     Active Substance: ISOSORBIDE DINITRATE
     Indication: CARDIAC DISORDER
  9. KETIPINOR [Concomitant]
     Indication: AFFECTIVE DISORDER
     Route: 048
  10. INSOMIN [Concomitant]
     Indication: SLEEP DISORDER
     Route: 048
  11. NEUROBION [Concomitant]
     Active Substance: CYANOCOBALAMIN\PYRIDOXINE\THIAMINE
     Indication: VITAMIN SUPPLEMENTATION
     Dosage: 1 X 1
     Route: 048
  12. ARTHRYL [Concomitant]
     Indication: OSTEOARTHRITIS
     Route: 048
  13. KETIPINOR [Concomitant]
     Indication: SLEEP DISORDER
  14. OPAMOX [Concomitant]
     Indication: SEDATION
     Route: 048
  15. LAXOBERON [Concomitant]
     Active Substance: SODIUM PICOSULFATE
     Indication: PROPHYLAXIS
  16. HISTEC [Concomitant]
     Indication: HYPERSENSITIVITY

REACTIONS (6)
  - Psychotic disorder [Recovered/Resolved]
  - Pyrexia [Recovered/Resolved]
  - Major depression [Recovered/Resolved]
  - Chest pain [Recovered/Resolved]
  - Dizziness [Recovered/Resolved]
  - Tinnitus [Recovered/Resolved]

NARRATIVE: CASE EVENT DATE: 20140602
